FAERS Safety Report 22152040 (Version 1)
Quarter: 2023Q1

REPORT INFORMATION
  Report Type: Spontaneous
  Country: CN (occurrence: CN)
  Receive Date: 20230329
  Receipt Date: 20230329
  Transmission Date: 20230417
  Serious: Yes (Other)
  Sender: FDA-Public Use
  Company Number: CN-ELI_LILLY_AND_COMPANY-CN202303010142

PATIENT
  Age: 72 Year
  Sex: Male
  Weight: 54 kg

DRUGS (7)
  1. ALIMTA [Suspect]
     Active Substance: PEMETREXED DISODIUM
     Indication: Chemotherapy
     Dosage: 0.1 G, SINGLE
     Route: 042
     Dates: start: 20230210, end: 20230210
  2. ALIMTA [Suspect]
     Active Substance: PEMETREXED DISODIUM
     Dosage: 0.5 G, SINGLE
     Route: 042
     Dates: start: 20230210, end: 20230210
  3. CARBOPLATIN [Suspect]
     Active Substance: CARBOPLATIN
     Indication: Chemotherapy
     Dosage: 300 MG, SINGLE
     Route: 042
     Dates: start: 20230210, end: 20230210
  4. SUGEMALIMAB [Suspect]
     Active Substance: SUGEMALIMAB
     Indication: Targeted cancer therapy
     Dosage: 1200 MG, SINGLE
     Route: 042
     Dates: start: 20230210, end: 20230210
  5. SODIUM CHLORIDE [Concomitant]
     Active Substance: SODIUM CHLORIDE
     Indication: Vehicle solution use
     Dosage: 100 ML, SINGLE
     Route: 042
     Dates: start: 20230210, end: 20230210
  6. SODIUM CHLORIDE [Concomitant]
     Active Substance: SODIUM CHLORIDE
     Dosage: 100 ML, SINGLE
     Route: 042
     Dates: start: 20230210, end: 20230210
  7. DEXTROSE [Concomitant]
     Active Substance: DEXTROSE
     Indication: Vehicle solution use
     Dosage: 500 ML, SINGLE
     Route: 042
     Dates: start: 20230210, end: 20230210

REACTIONS (1)
  - Full blood count decreased [Recovering/Resolving]

NARRATIVE: CASE EVENT DATE: 20230219
